FAERS Safety Report 15605556 (Version 1)
Quarter: 2018Q4

REPORT INFORMATION
  Report Type: Spontaneous
  Country: ES (occurrence: ES)
  Receive Date: 20181112
  Receipt Date: 20181112
  Transmission Date: 20190205
  Serious: Yes (Hospitalization)
  Sender: FDA-Public Use
  Company Number: ES-TEVA-2018-ES-974682

PATIENT
  Age: 92 Year
  Sex: Female

DRUGS (5)
  1. METAMIZOL (111A) [Concomitant]
     Active Substance: METAMIZOL SODIUM
     Indication: CELLULITIS
     Dosage: 575 MG
     Route: 065
     Dates: start: 20180605
  2. ?CIDO ACETILSALIC?LICO [Concomitant]
     Active Substance: ASPIRIN
  3. TRAMADOL. [Suspect]
     Active Substance: TRAMADOL
     Indication: NECROSIS
     Dosage: 50 MCG
     Route: 065
     Dates: start: 20180704, end: 20180707
  4. AMOXICILINA + ?CIDO CLAVUL?NICO [Suspect]
     Active Substance: AMOXICILLIN\CLAVULANIC ACID
     Indication: SKIN NECROSIS
     Dosage: 500 MG
     Route: 048
     Dates: start: 20180704, end: 20180707
  5. ?CIDO F?LICO [Concomitant]
     Route: 065

REACTIONS (2)
  - Vomiting [Recovered/Resolved]
  - Dehydration [Recovered/Resolved]

NARRATIVE: CASE EVENT DATE: 20180707
